FAERS Safety Report 8484114-5 (Version None)
Quarter: 2012Q3

REPORT INFORMATION
  Report Type: 
  Country: None (occurrence: None)
  Receive Date: 20120703
  Receipt Date: 20120625
  Transmission Date: 20120928
  Serious: Yes (Death, Disabling)
  Sender: FDA-Public Use
  Company Number: NO-CELGENEUS-122-21880-12063426

PATIENT
  Sex: Male
  Weight: 80 kg

DRUGS (5)
  1. PREDNISONE TAB [Suspect]
     Indication: MULTIPLE MYELOMA
     Dosage: 160 MILLIGRAM
     Route: 048
     Dates: start: 20120427, end: 20120430
  2. MORPHINE SULFATE [Concomitant]
     Indication: PAIN
     Dosage: 80 MILLIGRAM
     Route: 048
     Dates: start: 20120430, end: 20120514
  3. REVLIMID [Suspect]
     Indication: MULTIPLE MYELOMA
     Dosage: 10 MILLIGRAM
     Route: 048
     Dates: start: 20120427, end: 20120514
  4. MELPHALAN HYDROCHLORIDE [Suspect]
     Indication: MULTIPLE MYELOMA
     Dosage: 14 MILLIGRAM
     Route: 048
     Dates: start: 20120427, end: 20120430
  5. HALDOL [Concomitant]
     Route: 048
     Dates: start: 20120502, end: 20120510

REACTIONS (1)
  - PARKINSONISM [None]
